FAERS Safety Report 5337925-9 (Version None)
Quarter: 2007Q2

REPORT INFORMATION
  Report Type: 
  Country: None (occurrence: None)
  Receive Date: 20070327
  Receipt Date: 20070119
  Transmission Date: 20071010
  Serious: No
  Sender: FDA-Public Use
  Company Number: 230212

PATIENT
  Age: 38 Year
  Sex: Female

DRUGS (3)
  1. AVASTIN [Suspect]
     Indication: BRAIN NEOPLASM MALIGNANT
     Dosage: INTRAVENOUS
     Route: 042
  2. IRINOTECAN HCL [Concomitant]
  3. RADIATION THERAPY (RADIATION THERAPY) [Concomitant]

REACTIONS (1)
  - GAIT DISTURBANCE [None]
